FAERS Safety Report 8857537 (Version 2)
Quarter: 2012Q4

REPORT INFORMATION
  Report Type: 
  Country: JP (occurrence: JP)
  Receive Date: 20121024
  Receipt Date: 20121030
  Transmission Date: 20130627
  Serious: Yes (Other)
  Sender: FDA-Public Use
  Company Number: JP-GLAXOSMITHKLINE-B0836526A

PATIENT
  Age: 86 Year
  Sex: Female

DRUGS (5)
  1. PAXIL [Suspect]
     Indication: DEPRESSION
     Dosage: 10MG Per day
     Route: 048
  2. DEPAS [Concomitant]
     Indication: ANXIETY
     Dosage: .5MG Per day
     Route: 048
  3. AMLODIN [Concomitant]
     Indication: HYPERTENSION
     Dosage: 5MG Per day
     Route: 048
  4. AMLODIPINE [Concomitant]
     Indication: HYPERTENSION
     Dosage: 5MG Per day
     Route: 048
  5. ANTIBIOTIC [Concomitant]
     Indication: URINARY TRACT INFECTION
     Route: 042

REACTIONS (6)
  - Urinary tract infection [Unknown]
  - Blood creatine phosphokinase increased [Recovering/Resolving]
  - Pyrexia [Recovering/Resolving]
  - Dyspepsia [Unknown]
  - Face oedema [Unknown]
  - Gastroenteritis [Unknown]
